FAERS Safety Report 24726947 (Version 2)
Quarter: 2024Q4

REPORT INFORMATION
  Report Type: Spontaneous
  Country: US (occurrence: US)
  Receive Date: 20241212
  Receipt Date: 20241225
  Transmission Date: 20250114
  Serious: No
  Sender: AMGEN
  Company Number: US-AMGEN-USASP2024241902

PATIENT
  Sex: Female

DRUGS (2)
  1. IMDELLTRA [Suspect]
     Active Substance: TARLATAMAB-DLLE
     Indication: Small cell lung cancer
     Dosage: UNK, SLOWED INFUSION TO 25% FOR FIRST CYCLE
     Route: 065
     Dates: start: 202411, end: 202411
  2. IMDELLTRA [Suspect]
     Active Substance: TARLATAMAB-DLLE
     Dosage: UNK, NEXT INFUSION DID 50% INFUSION
     Route: 065
     Dates: start: 2024

REACTIONS (4)
  - Chills [Recovered/Resolved]
  - Hypertension [Recovered/Resolved]
  - Back pain [Unknown]
  - Incorrect drug administration rate [Unknown]

NARRATIVE: CASE EVENT DATE: 20240101
